FAERS Safety Report 25455702 (Version 1)
Quarter: 2025Q2

REPORT INFORMATION
  Report Type: Report from Study
  Country: CN (occurrence: CN)
  Receive Date: 20250619
  Receipt Date: 20250619
  Transmission Date: 20250716
  Serious: Yes (Hospitalization)
  Sender: ROCHE
  Company Number: CN-ROCHE-10000249545

PATIENT
  Age: 83 Year
  Sex: Male
  Weight: 56.8 kg

DRUGS (118)
  1. POLATUZUMAB VEDOTIN [Suspect]
     Active Substance: POLATUZUMAB VEDOTIN
     Indication: Diffuse large B-cell lymphoma
     Route: 042
     Dates: start: 20240808, end: 20240808
  2. POLATUZUMAB VEDOTIN [Suspect]
     Active Substance: POLATUZUMAB VEDOTIN
     Route: 042
     Dates: start: 20240903, end: 20240903
  3. RITUXIMAB [Suspect]
     Active Substance: RITUXIMAB
     Indication: Diffuse large B-cell lymphoma
     Route: 042
     Dates: start: 20240807, end: 20240807
  4. RITUXIMAB [Suspect]
     Active Substance: RITUXIMAB
     Route: 042
     Dates: start: 20240902, end: 20240902
  5. DOXORUBICIN HYDROCHLORIDE [Suspect]
     Active Substance: DOXORUBICIN HYDROCHLORIDE
     Indication: Diffuse large B-cell lymphoma
     Route: 042
     Dates: start: 20240808, end: 20240808
  6. DOXORUBICIN HYDROCHLORIDE [Suspect]
     Active Substance: DOXORUBICIN HYDROCHLORIDE
     Route: 042
     Dates: start: 20240903, end: 20240903
  7. CYCLOPHOSPHAMIDE [Suspect]
     Active Substance: CYCLOPHOSPHAMIDE
     Indication: Diffuse large B-cell lymphoma
     Route: 042
     Dates: start: 20240808, end: 20240808
  8. CYCLOPHOSPHAMIDE [Suspect]
     Active Substance: CYCLOPHOSPHAMIDE
     Route: 042
     Dates: start: 20240903, end: 20240903
  9. METHYLPREDNISOLONE [Suspect]
     Active Substance: METHYLPREDNISOLONE
     Indication: Diffuse large B-cell lymphoma
     Route: 042
     Dates: start: 20240808, end: 20240812
  10. PREDNISONE [Suspect]
     Active Substance: PREDNISONE
     Indication: Diffuse large B-cell lymphoma
     Route: 048
     Dates: end: 20240907
  11. PREDNISONE [Suspect]
     Active Substance: PREDNISONE
     Route: 048
     Dates: start: 20240908, end: 20240912
  12. LENALIDOMIDE [Suspect]
     Active Substance: LENALIDOMIDE
     Indication: Diffuse large B-cell lymphoma
     Route: 048
     Dates: end: 20240912
  13. METHYLPREDNISOLONE SODIUM SUCCINATE [Concomitant]
     Active Substance: METHYLPREDNISOLONE SODIUM SUCCINATE
     Route: 042
     Dates: start: 20240801, end: 20240807
  14. METHYLPREDNISOLONE SODIUM SUCCINATE [Concomitant]
     Active Substance: METHYLPREDNISOLONE SODIUM SUCCINATE
     Route: 042
     Dates: start: 20240902, end: 20240902
  15. METHYLPREDNISOLONE SODIUM SUCCINATE [Concomitant]
     Active Substance: METHYLPREDNISOLONE SODIUM SUCCINATE
     Route: 042
     Dates: start: 20240925, end: 20240925
  16. METHYLPREDNISOLONE SODIUM SUCCINATE [Concomitant]
     Active Substance: METHYLPREDNISOLONE SODIUM SUCCINATE
     Route: 042
     Dates: start: 20241019, end: 20241019
  17. METHYLPREDNISOLONE SODIUM SUCCINATE [Concomitant]
     Active Substance: METHYLPREDNISOLONE SODIUM SUCCINATE
     Route: 042
     Dates: start: 20241119, end: 20241119
  18. METHYLPREDNISOLONE SODIUM SUCCINATE [Concomitant]
     Active Substance: METHYLPREDNISOLONE SODIUM SUCCINATE
     Route: 042
     Dates: start: 20250416, end: 20250427
  19. OMEPRAZOLE [Concomitant]
     Active Substance: OMEPRAZOLE
     Route: 048
     Dates: start: 20240801, end: 20240812
  20. OMEPRAZOLE [Concomitant]
     Active Substance: OMEPRAZOLE
     Route: 048
     Dates: start: 20240814, end: 202409
  21. OMEPRAZOLE [Concomitant]
     Active Substance: OMEPRAZOLE
     Route: 048
     Dates: start: 20240902, end: 20240902
  22. OMEPRAZOLE [Concomitant]
     Active Substance: OMEPRAZOLE
     Route: 048
     Dates: start: 20240908, end: 20240912
  23. OMEPRAZOLE [Concomitant]
     Active Substance: OMEPRAZOLE
     Route: 042
     Dates: start: 20240924, end: 20240925
  24. OMEPRAZOLE [Concomitant]
     Active Substance: OMEPRAZOLE
     Route: 048
     Dates: start: 20240926, end: 20241005
  25. OMEPRAZOLE [Concomitant]
     Active Substance: OMEPRAZOLE
     Route: 048
     Dates: start: 20241019, end: 20241019
  26. OMEPRAZOLE [Concomitant]
     Active Substance: OMEPRAZOLE
     Route: 048
     Dates: start: 20241020, end: 20241025
  27. OMEPRAZOLE [Concomitant]
     Active Substance: OMEPRAZOLE
     Route: 048
     Dates: start: 20241119, end: 20241124
  28. OMEPRAZOLE [Concomitant]
     Active Substance: OMEPRAZOLE
     Route: 048
     Dates: start: 20241222, end: 20241226
  29. CEFTAZIDIME [Concomitant]
     Active Substance: CEFTAZIDIME
     Route: 042
     Dates: start: 20240801, end: 20240814
  30. CEFTAZIDIME [Concomitant]
     Active Substance: CEFTAZIDIME
     Route: 042
     Dates: start: 20241217, end: 20241222
  31. LACTULOSE [Concomitant]
     Active Substance: LACTULOSE
     Route: 048
     Dates: start: 20240802, end: 20240802
  32. LACTULOSE [Concomitant]
     Active Substance: LACTULOSE
     Route: 048
     Dates: start: 20240905
  33. SODIUM BICARBONATE [Concomitant]
     Active Substance: SODIUM BICARBONATE
     Route: 042
     Dates: start: 20240802, end: 20240812
  34. SODIUM BICARBONATE [Concomitant]
     Active Substance: SODIUM BICARBONATE
     Route: 048
  35. FINASTERIDE [Concomitant]
     Active Substance: FINASTERIDE
     Indication: Benign prostatic hyperplasia
     Route: 048
     Dates: start: 20240806, end: 20240806
  36. FINASTERIDE [Concomitant]
     Active Substance: FINASTERIDE
     Route: 048
     Dates: start: 20240902
  37. PROMETHAZINE HYDROCHLORIDE [Concomitant]
     Active Substance: PROMETHAZINE HYDROCHLORIDE
     Indication: Vomiting
     Route: 030
     Dates: start: 20240808, end: 20240808
  38. PROMETHAZINE HYDROCHLORIDE [Concomitant]
     Active Substance: PROMETHAZINE HYDROCHLORIDE
     Route: 030
     Dates: start: 20240902, end: 20240903
  39. PROMETHAZINE HYDROCHLORIDE [Concomitant]
     Active Substance: PROMETHAZINE HYDROCHLORIDE
     Route: 030
     Dates: start: 20240925, end: 20240926
  40. PROMETHAZINE HYDROCHLORIDE [Concomitant]
     Active Substance: PROMETHAZINE HYDROCHLORIDE
     Route: 030
     Dates: start: 20241019, end: 20241019
  41. PROMETHAZINE HYDROCHLORIDE [Concomitant]
     Active Substance: PROMETHAZINE HYDROCHLORIDE
     Route: 030
     Dates: start: 20241119, end: 20241120
  42. PROMETHAZINE HYDROCHLORIDE [Concomitant]
     Active Substance: PROMETHAZINE HYDROCHLORIDE
     Route: 030
     Dates: start: 20241218, end: 20241218
  43. PROMETHAZINE HYDROCHLORIDE [Concomitant]
     Active Substance: PROMETHAZINE HYDROCHLORIDE
     Route: 030
     Dates: start: 20241221, end: 20241221
  44. PROMETHAZINE HYDROCHLORIDE [Concomitant]
     Active Substance: PROMETHAZINE HYDROCHLORIDE
     Route: 030
     Dates: start: 20250416, end: 20250416
  45. PALONOSETRON HYDROCHLORIDE [Concomitant]
     Active Substance: PALONOSETRON HYDROCHLORIDE
     Route: 042
     Dates: start: 20240808, end: 20240808
  46. PALONOSETRON HYDROCHLORIDE [Concomitant]
     Active Substance: PALONOSETRON HYDROCHLORIDE
     Route: 042
     Dates: start: 20241218, end: 20241218
  47. PALONOSETRON HYDROCHLORIDE [Concomitant]
     Active Substance: PALONOSETRON HYDROCHLORIDE
     Route: 042
     Dates: start: 20241221, end: 20241221
  48. PALONOSETRON HYDROCHLORIDE [Concomitant]
     Active Substance: PALONOSETRON HYDROCHLORIDE
     Route: 048
     Dates: start: 20250410, end: 20250413
  49. Pegylated recombinant human granulocyte stimulating factor [Concomitant]
     Indication: White blood cell count increased
     Dosage: OTHER ROUTE OF MEDICATION ADMIN: IH
     Route: 050
     Dates: start: 20240809, end: 20240809
  50. Pegylated recombinant human granulocyte stimulating factor [Concomitant]
     Indication: Neutrophil count increased
     Route: 058
     Dates: start: 20240902, end: 20240904
  51. Pegylated recombinant human granulocyte stimulating factor [Concomitant]
     Indication: Granulocyte count increased
     Route: 030
     Dates: start: 20240926, end: 20240926
  52. Pegylated recombinant human granulocyte stimulating factor [Concomitant]
     Dosage: MEDICATION ROUTE: OTHER?OTHER ROUTE OF MEDICATION ADMIN IH
     Dates: start: 20241019, end: 20241019
  53. Pegylated recombinant human granulocyte stimulating factor [Concomitant]
     Dosage: MEDICATION ROUTE: OTHER?OTHER ROUTE OF MEDICATION ADMIN IH
     Dates: start: 20241120, end: 20241120
  54. Pegylated recombinant human granulocyte stimulating factor [Concomitant]
     Dosage: MEDICATION ROUTE: OTHER?OTHER ROUTE OF MEDICATION ADMIN IH
     Dates: start: 20240418, end: 20241218
  55. Pegylated recombinant human granulocyte stimulating factor [Concomitant]
     Dosage: MEDICATION ROUTE: OTHER?OTHER ROUTE OF MEDICATION ADMIN IH
     Dates: start: 20241221, end: 20241221
  56. Pegylated recombinant human granulocyte stimulating factor [Concomitant]
     Dosage: MEDICATION ROUTE: OTHER?OTHER ROUTE OF MEDICATION ADMIN IH
     Dates: start: 20250305, end: 20250306
  57. DOXAZOSIN MESYLATE [Concomitant]
     Active Substance: DOXAZOSIN MESYLATE
     Indication: Benign prostatic hyperplasia
     Route: 048
     Dates: start: 20240810, end: 20240901
  58. DOXAZOSIN MESYLATE [Concomitant]
     Active Substance: DOXAZOSIN MESYLATE
     Route: 048
     Dates: start: 20240902
  59. Chlorhexidine gargle compound [Concomitant]
     Dosage: OTHER ROUTE OF MEDICATION ADMIN RINSE THE MOUTH
     Route: 050
     Dates: start: 20240812, end: 20240812
  60. DEXAMETHASONE SODIUM PHOSPHATE [Concomitant]
     Active Substance: DEXAMETHASONE SODIUM PHOSPHATE
     Route: 050
     Dates: start: 20240813, end: 20240813
  61. DEXAMETHASONE SODIUM PHOSPHATE [Concomitant]
     Active Substance: DEXAMETHASONE SODIUM PHOSPHATE
     Dates: start: 20240902, end: 20240902
  62. DEXAMETHASONE SODIUM PHOSPHATE [Concomitant]
     Active Substance: DEXAMETHASONE SODIUM PHOSPHATE
     Route: 029
     Dates: start: 20241018, end: 20241018
  63. DEXAMETHASONE SODIUM PHOSPHATE [Concomitant]
     Active Substance: DEXAMETHASONE SODIUM PHOSPHATE
     Route: 029
     Dates: start: 20241118, end: 20241118
  64. METHOTREXATE [Concomitant]
     Active Substance: METHOTREXATE
     Route: 050
     Dates: start: 20240813, end: 20240813
  65. METHOTREXATE [Concomitant]
     Active Substance: METHOTREXATE
     Dates: start: 20240902, end: 20240902
  66. METHOTREXATE [Concomitant]
     Active Substance: METHOTREXATE
     Route: 029
     Dates: start: 20241018, end: 20241018
  67. METHOTREXATE [Concomitant]
     Active Substance: METHOTREXATE
     Route: 029
     Dates: start: 20241118, end: 20241118
  68. CYTARABINE HYDROCHLORIDE [Concomitant]
     Active Substance: CYTARABINE HYDROCHLORIDE
     Route: 050
     Dates: start: 20240813, end: 20240813
  69. CYTARABINE HYDROCHLORIDE [Concomitant]
     Active Substance: CYTARABINE HYDROCHLORIDE
     Dates: start: 20240902, end: 20240902
  70. CYTARABINE HYDROCHLORIDE [Concomitant]
     Active Substance: CYTARABINE HYDROCHLORIDE
     Route: 029
     Dates: start: 20241018, end: 20241018
  71. CYTARABINE HYDROCHLORIDE [Concomitant]
     Active Substance: CYTARABINE HYDROCHLORIDE
     Route: 029
     Dates: start: 20241118, end: 20241118
  72. LEUCOGEN [Concomitant]
     Active Substance: LEUCOGEN
     Route: 048
     Dates: start: 20240820
  73. CEFACLOR [Concomitant]
     Active Substance: CEFACLOR
     Route: 048
     Dates: start: 20240820
  74. ACETAMINOPHEN\ASPIRIN\CAFFEINE [Concomitant]
     Active Substance: ACETAMINOPHEN\ASPIRIN\CAFFEINE
     Route: 048
     Dates: start: 20240903, end: 20240903
  75. ACETAMINOPHEN\ASPIRIN\CAFFEINE [Concomitant]
     Active Substance: ACETAMINOPHEN\ASPIRIN\CAFFEINE
     Route: 048
     Dates: start: 20240926, end: 20240926
  76. ACETAMINOPHEN\ASPIRIN\CAFFEINE [Concomitant]
     Active Substance: ACETAMINOPHEN\ASPIRIN\CAFFEINE
     Route: 048
     Dates: start: 20241019, end: 20241019
  77. ACETAMINOPHEN\ASPIRIN\CAFFEINE [Concomitant]
     Active Substance: ACETAMINOPHEN\ASPIRIN\CAFFEINE
     Route: 048
     Dates: start: 20241120, end: 20241120
  78. ACETAMINOPHEN\ASPIRIN\CAFFEINE [Concomitant]
     Active Substance: ACETAMINOPHEN\ASPIRIN\CAFFEINE
     Route: 048
     Dates: start: 20241218, end: 20241218
  79. ACETAMINOPHEN\ASPIRIN\CAFFEINE [Concomitant]
     Active Substance: ACETAMINOPHEN\ASPIRIN\CAFFEINE
     Route: 048
     Dates: start: 20250305, end: 20250305
  80. ACETAMINOPHEN\ASPIRIN\CAFFEINE [Concomitant]
     Active Substance: ACETAMINOPHEN\ASPIRIN\CAFFEINE
     Route: 048
     Dates: start: 20250310, end: 20250311
  81. ACETAMINOPHEN\ASPIRIN\CAFFEINE [Concomitant]
     Active Substance: ACETAMINOPHEN\ASPIRIN\CAFFEINE
     Route: 048
     Dates: start: 20250416, end: 20250419
  82. PALONOSETRON HYDROCHLORIDE [Concomitant]
     Active Substance: PALONOSETRON HYDROCHLORIDE
     Indication: Vomiting
     Route: 042
     Dates: start: 20240903, end: 20240903
  83. PALONOSETRON HYDROCHLORIDE [Concomitant]
     Active Substance: PALONOSETRON HYDROCHLORIDE
     Route: 042
     Dates: start: 20240926, end: 20240926
  84. PALONOSETRON HYDROCHLORIDE [Concomitant]
     Active Substance: PALONOSETRON HYDROCHLORIDE
     Route: 042
     Dates: start: 20241019, end: 20241019
  85. PALONOSETRON HYDROCHLORIDE [Concomitant]
     Active Substance: PALONOSETRON HYDROCHLORIDE
     Route: 042
     Dates: start: 20241120, end: 20241120
  86. ENEMA [PHOSPHORIC ACID SODIUM] [Concomitant]
     Dates: start: 20240804, end: 20240804
  87. ENEMA [PHOSPHORIC ACID SODIUM] [Concomitant]
     Route: 050
     Dates: start: 20240810, end: 20240810
  88. Compound acetaminophen [Concomitant]
     Route: 048
     Dates: start: 20240808, end: 20240808
  89. Bifidobacterium triple live powde [Concomitant]
     Route: 048
     Dates: start: 20240818, end: 20240828
  90. CALCIUM CHLORIDE\POTASSIUM CHLORIDE\SODIUM CHLORIDE\SODIUM LACTATE [Concomitant]
     Active Substance: CALCIUM CHLORIDE\POTASSIUM CHLORIDE\SODIUM CHLORIDE\SODIUM LACTATE
     Route: 042
     Dates: start: 20240818, end: 20240818
  91. ACYCLOVIR [Concomitant]
     Active Substance: ACYCLOVIR
     Route: 048
     Dates: start: 20241217, end: 20241222
  92. PSEUDOEPHEDRINE HYDROCHLORIDE [Concomitant]
     Active Substance: PSEUDOEPHEDRINE HYDROCHLORIDE
     Route: 048
     Dates: start: 20241217, end: 20241218
  93. BALOXAVIR MARBOXIL [Concomitant]
     Active Substance: BALOXAVIR MARBOXIL
     Route: 048
     Dates: start: 20241218, end: 20241218
  94. CEFTRIAXONE SODIUM [Concomitant]
     Active Substance: CEFTRIAXONE SODIUM
     Route: 042
     Dates: start: 20250225, end: 20250313
  95. AMBROXOL HYDROCHLORIDE [Concomitant]
     Active Substance: AMBROXOL HYDROCHLORIDE
     Route: 042
     Dates: start: 20250311, end: 20250314
  96. FLURBIPROFEN [Concomitant]
     Active Substance: FLURBIPROFEN
     Dates: start: 20250311, end: 20250317
  97. ALBUMIN HUMAN [Concomitant]
     Active Substance: ALBUMIN HUMAN
     Route: 042
     Dates: start: 20250311, end: 20250313
  98. MONTMORILLONITE [Concomitant]
     Active Substance: MONTMORILLONITE
     Route: 048
     Dates: start: 20250311, end: 20250312
  99. MONTMORILLONITE [Concomitant]
     Active Substance: MONTMORILLONITE
     Route: 048
     Dates: start: 20250417, end: 20250417
  100. CALCIUM CARBONATE\CHOLECALCIFEROL [Concomitant]
     Active Substance: CALCIUM CARBONATE\CHOLECALCIFEROL
     Route: 048
     Dates: start: 20250306, end: 20250311
  101. CETIRIZINE HYDROCHLORIDE [Concomitant]
     Active Substance: CETIRIZINE HYDROCHLORIDE
     Route: 048
     Dates: start: 20250409, end: 20250422
  102. LINEZOLID [Concomitant]
     Active Substance: LINEZOLID
     Route: 042
     Dates: start: 20250410, end: 20250502
  103. FLUDARABINE PHOSPHATE [Concomitant]
     Active Substance: FLUDARABINE PHOSPHATE
     Route: 042
     Dates: start: 20250411, end: 20250413
  104. APREPITANT [Concomitant]
     Active Substance: APREPITANT
     Route: 048
     Dates: start: 20250410, end: 20250411
  105. ESOMEPRAZOLE SODIUM [Concomitant]
     Active Substance: ESOMEPRAZOLE SODIUM
     Route: 042
     Dates: start: 20250411, end: 20250427
  106. SPIRONOLACTONE [Concomitant]
     Active Substance: SPIRONOLACTONE
     Route: 048
     Dates: start: 20250410, end: 20250417
  107. FUROSEMIDE [Concomitant]
     Active Substance: FUROSEMIDE
     Route: 048
     Dates: start: 20250410, end: 20250417
  108. ETHAMSYLATE [Concomitant]
     Active Substance: ETHAMSYLATE
     Dates: start: 20250420, end: 20250427
  109. CASPOFUNGIN ACETATE [Concomitant]
     Active Substance: CASPOFUNGIN ACETATE
     Route: 042
     Dates: start: 20250421, end: 20250502
  110. Human Granulocyte Colony-stimulating Factor Injection [Concomitant]
     Dates: start: 20250421, end: 20250426
  111. SULFAMETHOXAZOLE [Concomitant]
     Active Substance: SULFAMETHOXAZOLE
     Route: 048
     Dates: start: 20250501
  112. FLUTICASONE PROPIONATE [Concomitant]
     Active Substance: FLUTICASONE PROPIONATE
     Dates: start: 20250410
  113. triamcinolone Acetonide and Econazole Nitrate [Concomitant]
     Dates: start: 20250410, end: 20250410
  114. PHENOBARBITAL SODIUM [Concomitant]
     Active Substance: PHENOBARBITAL SODIUM
     Route: 042
     Dates: start: 20250416, end: 20250416
  115. LEVETIRACETAM [Concomitant]
     Active Substance: LEVETIRACETAM
     Route: 048
     Dates: start: 20250416, end: 20250416
  116. SUCCINYLATED GELATIN [Concomitant]
     Active Substance: SUCCINYLATED GELATIN
     Route: 042
     Dates: start: 20250416, end: 20250416
  117. SODIUM GLYCEROPHOSPHATE [Concomitant]
     Active Substance: SODIUM GLYCEROPHOSPHATE
     Route: 042
     Dates: start: 20250421, end: 20250421
  118. VALACYCLOVIR HYDROCHLORIDE [Concomitant]
     Active Substance: VALACYCLOVIR HYDROCHLORIDE
     Route: 048
     Dates: start: 20250501

REACTIONS (3)
  - Urinary retention [Not Recovered/Not Resolved]
  - Upper respiratory tract infection [Recovered/Resolved]
  - Weight decreased [Recovered/Resolved]

NARRATIVE: CASE EVENT DATE: 20240901
